FAERS Safety Report 16424383 (Version 1)
Quarter: 2019Q2

REPORT INFORMATION
  Report Type: Spontaneous
  Country: US (occurrence: US)
  Receive Date: 20190613
  Receipt Date: 20190613
  Transmission Date: 20190711
  Serious: No
  Sender: FDA-Public Use
  Company Number: US-AUROBINDO-AUR-APL-2019-014167

PATIENT

DRUGS (1)
  1. OLANZAPINE TABLETS 7.5 MG [Suspect]
     Active Substance: OLANZAPINE
     Indication: PRODUCT USED FOR UNKNOWN INDICATION
     Dosage: UNK
     Route: 065

REACTIONS (4)
  - Pruritus generalised [Unknown]
  - Hypersensitivity [Unknown]
  - Pruritus [Unknown]
  - Irritability [Unknown]
